FAERS Safety Report 9936641 (Version 1)
Quarter: 2014Q1

REPORT INFORMATION
  Report Type: Spontaneous
  Country: US (occurrence: US)
  Receive Date: 20140228
  Receipt Date: 20140228
  Transmission Date: 20141002
  Serious: No
  Sender: FDA-Public Use
  Company Number: US-AMGEN-USASP2014007579

PATIENT
  Age: 55 Year
  Sex: Female
  Weight: 63.49 kg

DRUGS (14)
  1. ENBREL [Suspect]
     Indication: RHEUMATOID ARTHRITIS
     Dosage: 50 MG, QWK
     Route: 058
  2. ENBREL [Suspect]
     Indication: PSORIATIC ARTHROPATHY
  3. ENBREL [Suspect]
     Indication: PSORIASIS
  4. CALCIUM CITRATE [Concomitant]
     Dosage: UNK
  5. VITAMIN D                          /00107901/ [Concomitant]
     Dosage: UNK
  6. PRISTIQ [Concomitant]
     Dosage: UNK
  7. ABILIFY [Concomitant]
     Dosage: UNK
  8. KLONOPIN [Concomitant]
     Dosage: UNK
  9. ESTRACE [Concomitant]
     Dosage: UNK
  10. DIGOXIN [Concomitant]
     Dosage: UNK
  11. LEVOTHYROXINE [Concomitant]
     Dosage: UNK
  12. RITALIN [Concomitant]
     Dosage: UNK
  13. ZYPREXA [Concomitant]
     Dosage: UNK
  14. REMICAIDE [Concomitant]
     Dosage: UNK

REACTIONS (1)
  - Therapeutic response decreased [Unknown]
